FAERS Safety Report 9297164 (Version 2)
Quarter: 2013Q2

REPORT INFORMATION
  Report Type: Spontaneous
  Country: ES (occurrence: ES)
  Receive Date: 20130520
  Receipt Date: 20130604
  Transmission Date: 20140414
  Serious: Yes (Hospitalization)
  Sender: FDA-Public Use
  Company Number: ES-ROCHE-1225684

PATIENT
  Age: 34 Year
  Sex: Male

DRUGS (6)
  1. VESANOID [Suspect]
     Indication: ACUTE PROMYELOCYTIC LEUKAEMIA
     Route: 048
     Dates: start: 20120917, end: 20120929
  2. ACICLOVIR [Concomitant]
     Indication: PROPHYLAXIS
     Route: 048
     Dates: start: 20120917
  3. IDARUBICIN [Concomitant]
     Indication: ACUTE PROMYELOCYTIC LEUKAEMIA
     Route: 042
     Dates: start: 20120918
  4. MEROPENEM [Concomitant]
     Indication: PYREXIA
     Route: 065
     Dates: start: 20120916
  5. ONDANSETRON [Concomitant]
     Indication: PROPHYLAXIS
     Route: 042
     Dates: start: 20120915
  6. AMCHAFIBRIN [Concomitant]
     Indication: HAEMORRHAGE
     Route: 048
     Dates: start: 20120917, end: 20120929

REACTIONS (3)
  - Retinoic acid syndrome [Recovering/Resolving]
  - Acute respiratory distress syndrome [Recovered/Resolved]
  - Hepatitis [Recovering/Resolving]
